FAERS Safety Report 5767307-7 (Version None)
Quarter: 2008Q2

REPORT INFORMATION
  Report Type: 
  Country: None (occurrence: None)
  Receive Date: 20080605
  Receipt Date: 20080325
  Transmission Date: 20081010
  Serious: No
  Sender: FDA-Public Use
  Company Number: APP200800222

PATIENT
  Sex: Female

DRUGS (1)
  1. CEFOTETAN [Suspect]
     Indication: PROPHYLAXIS
     Dosage: 2 GM, ONCE, INTRAVENOUS
     Route: 042
     Dates: start: 20080325, end: 20080325

REACTIONS (2)
  - FLUSHING [None]
  - NAUSEA [None]
